FAERS Safety Report 6865797-X (Version None)
Quarter: 2010Q3

REPORT INFORMATION
  Report Type: 
  Country: None (occurrence: None)
  Receive Date: 20100720
  Receipt Date: 20100705
  Transmission Date: 20110219
  Serious: Yes (Other)
  Sender: FDA-Public Use
  Company Number: 2010P1000254

PATIENT
  Age: 52 Year
  Sex: Male

DRUGS (13)
  1. FENTANYL [Suspect]
     Indication: PAIN
     Dosage: 50 MCG/HR;Q72H;TDER
     Route: 062
  2. DULOXETINE HYDROCHLORIDE [Suspect]
     Dosage: 30 MG
     Dates: start: 20100430, end: 20100608
  3. GABAPENTIN [Concomitant]
  4. ATORVASTATIN [Concomitant]
  5. DIAMICRON [Concomitant]
  6. DILTIAZEM HCL [Concomitant]
  7. DOXAZOSIN [Concomitant]
  8. INDAPAMIDE [Concomitant]
  9. IVABRADINE [Concomitant]
  10. METFORMIN HCL [Concomitant]
  11. OMEPRAZOLE [Concomitant]
  12. ACETYLSALICYLIC ACID SRT [Concomitant]
  13. PARACETAMOL [Concomitant]

REACTIONS (1)
  - DRUG INTERACTION [None]
